FAERS Safety Report 9828460 (Version 1)
Quarter: 2013Q4

REPORT INFORMATION
  Report Type: Spontaneous
  Country: US (occurrence: None)
  Receive Date: 20131120
  Receipt Date: 20131120
  Transmission Date: 20140711
  Serious: No
  Sender: FDA-Public Use
  Company Number: 1000050320

PATIENT
  Age: 61 Year
  Sex: Female

DRUGS (3)
  1. VIIBRYD [Suspect]
     Indication: DEPRESSION
     Dosage: 10 MG (10 MG, 1 IN 1 D), ORAL
     Route: 048
     Dates: start: 20130816, end: 20130830
  2. LEVOTHYROXINE (LEVOTHYROXINE SODIUM) (LEVOTHYROXINE SODIUM) [Concomitant]
  3. ESTRADIOL (ESTRADIOL) (ESTRADIOL) [Concomitant]

REACTIONS (8)
  - Hallucination [None]
  - Vision blurred [None]
  - Abnormal dreams [None]
  - Nausea [None]
  - Eczema [None]
  - Urticaria [None]
  - Vomiting [None]
  - Excoriation [None]
